FAERS Safety Report 4766276-6 (Version None)
Quarter: 2005Q3

REPORT INFORMATION
  Report Type: 
  Country: None (occurrence: None)
  Receive Date: 20050912
  Receipt Date: 20050721
  Transmission Date: 20060218
  Serious: Yes (Other)
  Sender: FDA-Public Use
  Company Number: PHRM2005FR02143

PATIENT
  Age: 32 Year
  Sex: Female

DRUGS (8)
  1. ZOMETA [Suspect]
     Indication: METASTASES TO BONE
     Dosage: 4 MG, QMO
     Route: 042
     Dates: start: 20030101
  2. TECHNETIUM (99M TC) OXIDRONATE [Suspect]
     Indication: SCINTIGRAPHY
     Dates: start: 20050713, end: 20050713
  3. KETOPROFEN [Concomitant]
     Dosage: 150 MG, BID
  4. SOPHIDONE [Concomitant]
     Dosage: 32 MG, BID
     Route: 048
  5. ACTIQ [Concomitant]
     Dosage: 6000 UG PER DAY
     Route: 047
  6. MYOLASTAN [Concomitant]
     Dosage: 0.5 DF DAILY
  7. OMEPRAZOLE [Concomitant]
     Dosage: 20 MG, QD
     Route: 048
  8. TAMOXIFEN CITRATE [Concomitant]

REACTIONS (5)
  - ARTHRALGIA [None]
  - C-REACTIVE PROTEIN INCREASED [None]
  - DRUG INTERACTION [None]
  - HYPERTHERMIA [None]
  - MYALGIA [None]
